FAERS Safety Report 11925478 (Version 2)
Quarter: 2016Q1

REPORT INFORMATION
  Report Type: Spontaneous
  Country: AT (occurrence: AT)
  Receive Date: 20160118
  Receipt Date: 20160125
  Transmission Date: 20160526
  Serious: Yes (Other)
  Sender: FDA-Public Use
  Company Number: AT-TEVA-625493ISR

PATIENT
  Sex: Male
  Weight: 2.48 kg

DRUGS (3)
  1. LORATADIN RATIOPHARM TABLETTEN [Suspect]
     Active Substance: LORATADINE
     Route: 064
     Dates: start: 20150604, end: 20150607
  2. THYREX [Suspect]
     Active Substance: LEVOTHYROXINE SODIUM
     Route: 064
     Dates: start: 2014
  3. MEXALEN 500MG TABLETTEN [Suspect]
     Active Substance: ACETAMINOPHEN
     Dosage: 500 MILLIGRAM DAILY;
     Route: 064
     Dates: start: 20150618, end: 20150619

REACTIONS (3)
  - Foetal heart rate decreased [Unknown]
  - Foetal exposure during pregnancy [Unknown]
  - Premature baby [Unknown]

NARRATIVE: CASE EVENT DATE: 2015
